FAERS Safety Report 4685224-0 (Version None)
Quarter: 2005Q2

REPORT INFORMATION
  Report Type: 
  Country: None (occurrence: None)
  Receive Date: 20050608
  Receipt Date: 20050408
  Transmission Date: 20051028
  Serious: Yes (Hospitalization)
  Sender: FDA-Public Use
  Company Number: US-BOEHRINGER INGELHEIM PHARMACEUTICALS, INC.-2005-BP-05826BP

PATIENT
  Age: 85 Year
  Sex: Male

DRUGS (4)
  1. FLOMAX [Suspect]
     Indication: BENIGN PROSTATIC HYPERPLASIA
     Route: 048
     Dates: start: 20041001, end: 20041215
  2. FLOMAX [Suspect]
     Indication: DYSURIA
  3. DIOVAN [Concomitant]
     Indication: BLOOD PRESSURE
     Route: 048
  4. ASPIRIN [Concomitant]
     Indication: PROPHYLAXIS
     Route: 048

REACTIONS (8)
  - ANAL FISSURE [None]
  - CONSTIPATION [None]
  - DYSURIA [None]
  - PAIN [None]
  - PENILE INFECTION [None]
  - PHIMOSIS [None]
  - RETROGRADE EJACULATION [None]
  - URINARY HESITATION [None]
